FAERS Safety Report 19366883 (Version 1)
Quarter: 2021Q2

REPORT INFORMATION
  Report Type: Spontaneous
  Country: US (occurrence: US)
  Receive Date: 20210602
  Receipt Date: 20210602
  Transmission Date: 20210717
  Serious: Yes (Hospitalization)
  Sender: FDA-Public Use
  Company Number: US-ASTRAZENECA-2021A474326

PATIENT
  Age: 905 Month
  Sex: Male

DRUGS (1)
  1. DUAKLIR [Suspect]
     Active Substance: ACLIDINIUM BROMIDE\FORMOTEROL FUMARATE
     Indication: CHRONIC OBSTRUCTIVE PULMONARY DISEASE
     Dosage: 400/12MCG, 1 PUFF TWICE DAILY
     Route: 055
     Dates: start: 2019

REACTIONS (6)
  - Memory impairment [Unknown]
  - Full blood count decreased [Unknown]
  - Asthenia [Unknown]
  - Device malfunction [Unknown]
  - Oxygen consumption decreased [Unknown]
  - Incorrect dose administered by device [Unknown]

NARRATIVE: CASE EVENT DATE: 202012
